FAERS Safety Report 23454556 (Version 2)
Quarter: 2024Q1

REPORT INFORMATION
  Report Type: Spontaneous
  Country: CN (occurrence: CN)
  Receive Date: 20240130
  Receipt Date: 20240206
  Transmission Date: 20240410
  Serious: Yes (Hospitalization, Other)
  Sender: FDA-Public Use
  Company Number: CN-002147023-NVSC2024CN018337

PATIENT
  Age: 41 Year
  Sex: Female

DRUGS (2)
  1. SIPONIMOD [Suspect]
     Active Substance: SIPONIMOD
     Indication: Secondary progressive multiple sclerosis
     Dosage: 0.25, 0.25, 0.50, 0.75, 1.25MG ORALLY ON THE 1ST TO 5TH DAY
     Route: 048
     Dates: start: 202105
  2. SIPONIMOD [Suspect]
     Active Substance: SIPONIMOD
     Dosage: MAINTENANCE THERAPY WAS TAKEN ORALLY 2MG ONCE PER DAY
     Route: 048
     Dates: start: 202105

REACTIONS (2)
  - Pneumonia cryptococcal [Recovering/Resolving]
  - Secondary progressive multiple sclerosis [Recovering/Resolving]

NARRATIVE: CASE EVENT DATE: 20211130
